FAERS Safety Report 24181233 (Version 1)
Quarter: 2024Q3

REPORT INFORMATION
  Report Type: Spontaneous
  Country: US (occurrence: US)
  Receive Date: 20240806
  Receipt Date: 20240806
  Transmission Date: 20241017
  Serious: Yes (Death, Other)
  Sender: PFIZER
  Company Number: US-PFIZER INC-202300037801

PATIENT
  Age: 76 Year
  Sex: Male
  Weight: 97.052 kg

DRUGS (3)
  1. VYNDAMAX [Suspect]
     Active Substance: TAFAMIDIS
     Indication: Cardiac amyloidosis
     Dosage: 61 MG, 1X/DAY
     Route: 048
     Dates: start: 2021
  2. VYNDAMAX [Suspect]
     Active Substance: TAFAMIDIS
     Dosage: 61 MG, 1X/DAY
     Route: 048
     Dates: end: 20240728
  3. OXYGEN [Concomitant]
     Active Substance: OXYGEN
     Dosage: 2 LITERS AS NEEDED AT NIGHT OR IF HE WALKS TOO MUCH

REACTIONS (3)
  - Disease progression [Fatal]
  - Cardiac amyloidosis [Fatal]
  - Weight increased [Unknown]
